FAERS Safety Report 23309791 (Version 1)
Quarter: 2023Q4

REPORT INFORMATION
  Report Type: Spontaneous
  Country: ES (occurrence: ES)
  Receive Date: 20231218
  Receipt Date: 20231218
  Transmission Date: 20240110
  Serious: Yes (Hospitalization)
  Sender: FDA-Public Use
  Company Number: ES-KRKA-ES2022K09070LIT

PATIENT
  Age: 81 Year
  Sex: Female

DRUGS (33)
  1. ATORVASTATIN [Suspect]
     Active Substance: ATORVASTATIN
     Indication: Dyslipidaemia
     Dosage: 40 MG, 1X PER DAY, 0-0-1
     Route: 065
  2. EPLERENONE [Suspect]
     Active Substance: EPLERENONE
     Indication: Product used for unknown indication
     Dosage: UNK, (1/2-0-0)
     Route: 065
     Dates: start: 202201
  3. EPLERENONE [Suspect]
     Active Substance: EPLERENONE
     Dosage: UNK, (1/2-0-0)
     Route: 065
  4. EPLERENONE [Suspect]
     Active Substance: EPLERENONE
     Dosage: 1 DOSAGE FORM, QD (INCREASED TO 1 TABLET PER DAY)
     Route: 065
  5. EPLERENONE [Suspect]
     Active Substance: EPLERENONE
     Dosage: 0.5 MILLIGRAM (0.5 MG (1/2-0-0))
     Route: 065
  6. AMLODIPINE [Suspect]
     Active Substance: AMLODIPINE BESYLATE
     Indication: Hypertension
     Dosage: 5 MILLIGRAM, QD, (5 MG, 1X PER DAY, 0-0-1)
     Route: 065
  7. AMLODIPINE [Suspect]
     Active Substance: AMLODIPINE BESYLATE
     Dosage: 5 MILLIGRAM, QD
     Route: 065
  8. OMEPRAZOLE [Suspect]
     Active Substance: OMEPRAZOLE
     Indication: Product used for unknown indication
     Dosage: 1-0-0
     Route: 065
  9. OMEPRAZOLE [Suspect]
     Active Substance: OMEPRAZOLE
     Dosage: UNK, QD (1-0-0)
     Route: 065
  10. ACETAMINOPHEN [Suspect]
     Active Substance: ACETAMINOPHEN
     Indication: Product used for unknown indication
     Dosage: UNK UNK, PRN, (AS NEEDED)
     Route: 065
  11. ENALAPRIL [Suspect]
     Active Substance: ENALAPRIL
     Indication: Product used for unknown indication
     Dosage: UNK, (1/2-0-1/ 2)
     Route: 065
     Dates: start: 202201, end: 202204
  12. ENALAPRIL [Suspect]
     Active Substance: ENALAPRIL
     Dosage: UNK, (1/2-0-1/ 2)
     Route: 065
  13. ENALAPRIL [Suspect]
     Active Substance: ENALAPRIL
     Dosage: 5 MILLIGRAM (1/2-0-1/ 2)
     Route: 065
  14. CHOLECALCIFEROL [Suspect]
     Active Substance: CHOLECALCIFEROL
     Indication: Product used for unknown indication
     Dosage: 25000 IU, PER MONTH
     Route: 065
  15. METILDIGOXIN [Suspect]
     Active Substance: METILDIGOXIN
     Indication: Product used for unknown indication
     Dosage: UNK, (1-0-0)
     Route: 065
     Dates: start: 202201, end: 202202
  16. METILDIGOXIN [Suspect]
     Active Substance: METILDIGOXIN
     Dosage: UNK, (1-0-0)
     Route: 065
     Dates: start: 202201, end: 202204
  17. METILDIGOXIN [Suspect]
     Active Substance: METILDIGOXIN
     Dosage: 0.1 MILLIGRAM, QD (0.1 MG (1-0-0))
     Route: 065
  18. BRINZOLAMIDE [Suspect]
     Active Substance: BRINZOLAMIDE
     Indication: Product used for unknown indication
     Dosage: UNK, (1-0-1)
     Route: 065
     Dates: start: 202201, end: 202204
  19. BRINZOLAMIDE [Suspect]
     Active Substance: BRINZOLAMIDE
     Dosage: UNK, (1-0-1)
     Route: 065
     Dates: start: 202201, end: 202204
  20. BRINZOLAMIDE [Suspect]
     Active Substance: BRINZOLAMIDE
     Dosage: 10 MILLIGRAM, 10 MG COL (1-0-1)
     Route: 065
  21. IBANDRONIC ACID [Suspect]
     Active Substance: IBANDRONIC ACID
     Indication: Product used for unknown indication
     Dosage: UNK, (1-0-0)
     Route: 065
     Dates: start: 202201, end: 202204
  22. IBANDRONIC ACID [Suspect]
     Active Substance: IBANDRONIC ACID
     Dosage: UNK, (1-0-0)
     Route: 065
  23. IBANDRONIC ACID [Suspect]
     Active Substance: IBANDRONIC ACID
     Dosage: 150 MILLIGRAM, QD (150 MG (1-0-0))
     Route: 065
  24. ACENOCOUMAROL [Suspect]
     Active Substance: ACENOCOUMAROL
     Indication: Anticoagulant therapy
     Dosage: UNK
     Route: 065
     Dates: start: 2013
  25. BETAMETHASONE\CALCIPOTRIENE [Suspect]
     Active Substance: BETAMETHASONE\CALCIPOTRIENE
     Indication: Product used for unknown indication
     Dosage: 50 MCG/0.5 MG/G GEL AND FOAM
     Route: 065
     Dates: start: 202201, end: 202204
  26. MOMETASONE [Suspect]
     Active Substance: MOMETASONE
     Indication: Product used for unknown indication
     Dosage: UNK
     Route: 065
     Dates: start: 202201, end: 202204
  27. MOMETASONE [Suspect]
     Active Substance: MOMETASONE
     Dosage: UNK
     Route: 065
  28. MOMETASONE [Suspect]
     Active Substance: MOMETASONE
     Dosage: 0.1% OINTMENT
     Route: 065
  29. APIXABAN [Suspect]
     Active Substance: APIXABAN
     Indication: Product used for unknown indication
     Dosage: UNK, (1-0-1)
     Route: 065
     Dates: start: 202201, end: 202203
  30. APIXABAN [Suspect]
     Active Substance: APIXABAN
     Dosage: 5 MILLIGRAM, 5 MG(1-0-1)
     Route: 065
  31. FUROSEMIDE [Concomitant]
     Active Substance: FUROSEMIDE
     Indication: Product used for unknown indication
     Dosage: UNK, (1-0-1/2)
     Route: 065
     Dates: start: 202201, end: 202204
  32. FUROSEMIDE [Concomitant]
     Active Substance: FUROSEMIDE
     Dosage: UNK, (1-0-1/2)
     Route: 065
     Dates: start: 202201, end: 202204
  33. ACETAMINOPHEN [Concomitant]
     Active Substance: ACETAMINOPHEN
     Indication: Product used for unknown indication
     Dosage: UNK, AS NEEDED
     Route: 065

REACTIONS (8)
  - Wound haemorrhage [Unknown]
  - Bradycardia [Unknown]
  - Dyspnoea [Unknown]
  - Dizziness [Unknown]
  - Haematoma [Unknown]
  - Off label use [Unknown]
  - Therapeutic product effect decreased [Unknown]
  - Medication error [Unknown]

NARRATIVE: CASE EVENT DATE: 20220201
